FAERS Safety Report 7619837 (Version 8)
Quarter: 2012Q4

REPORT INFORMATION
  Report Type: 
  Country: JP (occurrence: JP)
  Receive Date: 20101007
  Receipt Date: 20121015
  Transmission Date: 20130627
  Serious: Yes (Hospitalization, Disabling)
  Sender: FDA-Public Use
  Company Number: JP-MPIJNJ-2010-05030

PATIENT

DRUGS (12)
  1. VELCADE [Suspect]
     Indication: MULTIPLE MYELOMA
     Dosage: 2.04 mg, Cyclic
     Route: 042
     Dates: start: 20100817, end: 20100827
  2. LOPEMIN [Suspect]
     Indication: DIARRHOEA
     Dosage: 1 mg, UNK
     Route: 048
     Dates: start: 20100826, end: 20100828
  3. LOPEMIN [Suspect]
     Dosage: 2 mg, UNK
     Route: 048
     Dates: start: 20100829, end: 20100830
  4. DEXAMETHASONE [Suspect]
     Indication: MULTIPLE MYELOMA
     Dosage: 20 mg, UNK
     Route: 048
     Dates: start: 20100817, end: 20100828
  5. SULFAMETHOXAZOLE, TRIMETHOPRIM [Suspect]
     Indication: ANTIFUNGAL PROPHYLAXIS
     Dosage: 4 DF, UNK
     Route: 048
     Dates: start: 20100817, end: 20100903
  6. TANNALBIN [Suspect]
     Indication: DIARRHOEA
     Dosage: UNK
     Route: 048
     Dates: start: 20100829, end: 20100830
  7. ITRAZOLE [Suspect]
     Indication: ANTIFUNGAL PROPHYLAXIS
     Dosage: 200 mg, UNK
     Route: 048
     Dates: start: 20100817, end: 20100831
  8. DIFLUCAN [Concomitant]
     Indication: ANTIFUNGAL PROPHYLAXIS
     Dosage: 200 mg, UNK
     Route: 048
     Dates: start: 20100901, end: 20100913
  9. DIFLUCAN [Concomitant]
     Dosage: 100 UNK, UNK
     Dates: start: 20100914, end: 20100918
  10. DIFLUCAN [Concomitant]
     Dosage: 200 mg, UNK
     Route: 048
     Dates: start: 20100922, end: 20100928
  11. FUNGUARD [Concomitant]
     Indication: FUNGAL INFECTION
     Dosage: 150 mg, UNK
     Route: 042
     Dates: start: 20100918, end: 20100921
  12. BLOPRESS [Concomitant]
     Indication: HYPERTENSION
     Dosage: 4 mg, UNK
     Route: 048
     Dates: start: 20100830

REACTIONS (10)
  - Neurogenic bladder [Not Recovered/Not Resolved]
  - Ureteric rupture [Not Recovered/Not Resolved]
  - Cytomegalovirus infection [Recovered/Resolved]
  - Thrombocytopenia [Recovered/Resolved]
  - Deep vein thrombosis [Recovering/Resolving]
  - Ileus paralytic [Recovered/Resolved]
  - Neuropathy peripheral [Recovering/Resolving]
  - Herpes simplex [Recovered/Resolved]
  - Drug interaction [Unknown]
  - Diarrhoea [Recovered/Resolved]
